FAERS Safety Report 7814941-6 (Version None)
Quarter: 2011Q4

REPORT INFORMATION
  Report Type: 
  Country: None (occurrence: None)
  Receive Date: 20111013
  Receipt Date: 20111013
  Transmission Date: 20120403
  Serious: No
  Sender: FDA-Public Use
  Company Number: None

PATIENT
  Sex: Female
  Weight: 68.4932 kg

DRUGS (1)
  1. RECLAST [Suspect]
     Indication: BONE DISORDER
     Dosage: 5 MG / 100 ML 1 ON 7-29-11
     Dates: start: 20110729

REACTIONS (7)
  - INFLUENZA LIKE ILLNESS [None]
  - FATIGUE [None]
  - CHEST PAIN [None]
  - DISEASE RECURRENCE [None]
  - HERPES ZOSTER [None]
  - HEADACHE [None]
  - ABDOMINAL PAIN UPPER [None]
